FAERS Safety Report 8684204 (Version 2)
Quarter: 2012Q4

REPORT INFORMATION
  Report Type: 
  Country: US (occurrence: US)
  Receive Date: 20120726
  Receipt Date: 20121130
  Transmission Date: 20130627
  Serious: No
  Sender: FDA-Public Use
  Company Number: US-ASTRAZENECA-2008UW25524

PATIENT
  Age: 53 Year
  Sex: Female

DRUGS (16)
  1. SEROQUEL [Suspect]
     Indication: BIPOLAR DISORDER
     Route: 048
     Dates: start: 2002
  2. SEROQUEL [Suspect]
     Indication: POST-TRAUMATIC STRESS DISORDER
     Route: 048
     Dates: start: 2002
  3. SEROQUEL [Suspect]
     Indication: ANXIETY
     Route: 048
     Dates: start: 2002
  4. SEROQUEL [Suspect]
     Indication: STRESS
     Route: 048
     Dates: start: 2002
  5. SEROQUEL [Suspect]
     Indication: AGORAPHOBIA
     Route: 048
     Dates: start: 2002
  6. SEROQUEL [Suspect]
     Indication: BIPOLAR DISORDER
     Route: 048
  7. SEROQUEL [Suspect]
     Indication: POST-TRAUMATIC STRESS DISORDER
     Route: 048
  8. SEROQUEL [Suspect]
     Indication: ANXIETY
     Route: 048
  9. SEROQUEL [Suspect]
     Indication: STRESS
     Route: 048
  10. SEROQUEL [Suspect]
     Indication: AGORAPHOBIA
     Route: 048
  11. SEROQUEL [Suspect]
     Indication: BIPOLAR DISORDER
     Dosage: 600 IN MORNING AND 600 MG AT NIGHT
     Route: 048
  12. SEROQUEL [Suspect]
     Indication: POST-TRAUMATIC STRESS DISORDER
     Dosage: 600 IN MORNING AND 600 MG AT NIGHT
     Route: 048
  13. SEROQUEL [Suspect]
     Indication: ANXIETY
     Dosage: 600 IN MORNING AND 600 MG AT NIGHT
     Route: 048
  14. SEROQUEL [Suspect]
     Indication: STRESS
     Dosage: 600 IN MORNING AND 600 MG AT NIGHT
     Route: 048
  15. SEROQUEL [Suspect]
     Indication: AGORAPHOBIA
     Dosage: 600 IN MORNING AND 600 MG AT NIGHT
     Route: 048
  16. OTHER MEDICATION [Suspect]
     Route: 065

REACTIONS (16)
  - Oral infection [Unknown]
  - Migraine [Unknown]
  - Menopausal symptoms [Unknown]
  - Hot flush [Unknown]
  - Nausea [Unknown]
  - Malaise [Unknown]
  - Head injury [Unknown]
  - Memory impairment [Unknown]
  - Epistaxis [Unknown]
  - Blood cholesterol increased [Unknown]
  - Fatigue [Unknown]
  - Dyspepsia [Unknown]
  - Vomiting [Unknown]
  - Weight increased [Unknown]
  - Drug dose omission [Unknown]
  - Off label use [Unknown]
